FAERS Safety Report 6695366-6 (Version None)
Quarter: 2010Q2

REPORT INFORMATION
  Report Type: 
  Country: None (occurrence: None)
  Receive Date: 20100423
  Receipt Date: 20100423
  Transmission Date: 20101027
  Serious: Yes (Hospitalization)
  Sender: FDA-Public Use
  Company Number: None

PATIENT
  Age: 74 Year
  Sex: Male
  Weight: 48.8 kg

DRUGS (13)
  1. COUMADIN [Suspect]
     Indication: AORTIC VALVE REPLACEMENT
     Dosage: 5 MG T TH SS PO CHRONIC
     Route: 048
  2. COUMADIN [Suspect]
     Indication: AORTIC VALVE REPLACEMENT
     Dosage: 2.5 MG M W F PO CHRONIC
     Route: 048
  3. ARANESP [Concomitant]
  4. METOPROLOL SUCCINATE [Concomitant]
  5. FUROSEMIDE [Concomitant]
  6. IRON POLYSACCHARIDE [Concomitant]
  7. JANUVIA [Concomitant]
  8. GARLIC [Concomitant]
  9. M.V.I. [Concomitant]
  10. OMEPRAZOLE [Concomitant]
  11. COLCHICINE [Concomitant]
  12. ADVAIR DISKUS 100/50 [Concomitant]
  13. VIT D [Concomitant]

REACTIONS (7)
  - CARDIAC DISORDER [None]
  - COAGULOPATHY [None]
  - GENERAL PHYSICAL HEALTH DETERIORATION [None]
  - HAEMATURIA [None]
  - INTERNATIONAL NORMALISED RATIO INCREASED [None]
  - PNEUMONIA [None]
  - RENAL FAILURE ACUTE [None]
